FAERS Safety Report 7953459-7 (Version None)
Quarter: 2011Q4

REPORT INFORMATION
  Report Type: 
  Country: None (occurrence: None)
  Receive Date: 20111202
  Receipt Date: 20111128
  Transmission Date: 20120403
  Serious: No
  Sender: FDA-Public Use
  Company Number: US-PFIZER INC-2011290621

PATIENT
  Sex: Male
  Weight: 77.098 kg

DRUGS (4)
  1. LIPITOR [Interacting]
     Indication: BLOOD CHOLESTEROL INCREASED
     Dosage: 10 MG, 1X/DAY
  2. COUMADIN [Interacting]
     Indication: ANTICOAGULANT THERAPY
     Dosage: 5 MG, 1X/DAY
  3. VIAGRA [Suspect]
     Indication: ERECTILE DYSFUNCTION
     Dosage: 50 MG, AS NEEDED
     Route: 048
     Dates: start: 20000101
  4. AMLODIPINE BESYLATE AND OLMESARTAN MEDOXOMIL [Interacting]
     Indication: HYPERTENSION
     Dosage: [AMLODIPINE BESILATE 5 MG]/[OLMESARTAN MEDOXOMIL 20 MG], DAILY

REACTIONS (2)
  - DRUG INEFFECTIVE [None]
  - DRUG INTERACTION [None]
